FAERS Safety Report 15698777 (Version 2)
Quarter: 2018Q4

REPORT INFORMATION
  Report Type: Spontaneous
  Country: US (occurrence: US)
  Receive Date: 20181207
  Receipt Date: 20181218
  Transmission Date: 20190205
  Serious: Yes (Congenital Anomaly, Other)
  Sender: FDA-Public Use
  Company Number: US-ALKEM LABORATORIES LIMITED-US-ALKEM-2018-10489

PATIENT
  Sex: Female

DRUGS (6)
  1. TACROLIMUS. [Concomitant]
     Active Substance: TACROLIMUS
     Indication: PRODUCT USED FOR UNKNOWN INDICATION
     Dosage: UNK
     Route: 064
  2. ACYCLOVIR. [Concomitant]
     Active Substance: ACYCLOVIR
     Indication: PRODUCT USED FOR UNKNOWN INDICATION
     Dosage: UNK
     Route: 064
  3. MYCOPHENOLATE MOFETIL. [Suspect]
     Active Substance: MYCOPHENOLATE MOFETIL
     Indication: PRODUCT USED FOR UNKNOWN INDICATION
     Dosage: UNK
     Route: 064
  4. PREDNISONE. [Concomitant]
     Active Substance: PREDNISONE
     Indication: PRODUCT USED FOR UNKNOWN INDICATION
     Dosage: UNK
     Route: 064
  5. FOLIC ACID. [Concomitant]
     Active Substance: FOLIC ACID
     Indication: PRODUCT USED FOR UNKNOWN INDICATION
     Dosage: UNK
     Route: 064
  6. BACTRIM [Concomitant]
     Active Substance: SULFAMETHOXAZOLE\TRIMETHOPRIM
     Indication: PRODUCT USED FOR UNKNOWN INDICATION
     Dosage: UNK
     Route: 064

REACTIONS (16)
  - Cleft lip and palate [Unknown]
  - Heart disease congenital [Unknown]
  - Hypertelorism of orbit [Unknown]
  - Microtia [Unknown]
  - Ventricular hypoplasia [Unknown]
  - Intestinal malrotation [Unknown]
  - Mitral valve stenosis [Unknown]
  - Pulmonary artery stenosis congenital [Unknown]
  - External auditory canal atresia [Unknown]
  - Foetal exposure during pregnancy [Unknown]
  - Congenital hand malformation [Unknown]
  - Microphthalmos [Unknown]
  - Cataract congenital [Unknown]
  - Spine malformation [Unknown]
  - Double outlet right ventricle [Unknown]
  - Micrognathia [Unknown]
